FAERS Safety Report 10522356 (Version 2)
Quarter: 2014Q4

REPORT INFORMATION
  Report Type: Spontaneous
  Country: US (occurrence: None)
  Receive Date: 20141010
  Receipt Date: 20141023
  Transmission Date: 20150528
  Serious: Yes (Death)
  Sender: FDA-Public Use
  Company Number: AMAG201400366

PATIENT
  Age: 87 Year
  Sex: Male
  Weight: 83 kg

DRUGS (14)
  1. ISOSORBIDE MONONITRATE (ISOSORBIDE MONONITRATE) [Concomitant]
     Active Substance: ISOSORBIDE MONONITRATE
  2. ASPIRIN (ACETYLSALICYLIC ACID) [Concomitant]
     Active Substance: ASPIRIN
  3. CORDARONE (AMIODARONE HYDROCHLORIDE) [Concomitant]
  4. LASIX [Concomitant]
     Active Substance: FUROSEMIDE
  5. ALDACTONE (POTASSIUM CANRENOATE) [Concomitant]
  6. NITROSTAT (GLYCERYL TRINITRATE) [Concomitant]
  7. FERAHEME [Suspect]
     Active Substance: FERUMOXYTOL NON-STOICHIOMETRIC MAGNETITE
     Indication: IRON DEFICIENCY ANAEMIA
     Dosage: 510 MG, SINGLE, IV PUSH
     Route: 042
     Dates: start: 20141001, end: 20141001
  8. ZOCOR [Concomitant]
     Active Substance: SIMVASTATIN
  9. SYNTHROID [Concomitant]
     Active Substance: LEVOTHYROXINE SODIUM
  10. COREG [Concomitant]
     Active Substance: CARVEDILOL
  11. COUMADIN [Concomitant]
     Active Substance: WARFARIN SODIUM
  12. FLOMAX [Concomitant]
     Active Substance: TAMSULOSIN HYDROCHLORIDE
  13. LOSARTAN (LOSARTAN) [Concomitant]
     Active Substance: LOSARTAN
  14. ZYLOPRIM (ALLOPURINOL) [Concomitant]

REACTIONS (8)
  - Ocular hyperaemia [None]
  - Unresponsive to stimuli [None]
  - Erythema [None]
  - Paraesthesia [None]
  - Myocardial infarction [None]
  - Circulatory collapse [None]
  - Cardiac arrest [None]
  - Hypoaesthesia [None]

NARRATIVE: CASE EVENT DATE: 20141001
